FAERS Safety Report 5179148-2 (Version None)
Quarter: 2006Q4

REPORT INFORMATION
  Report Type: 
  Country: None (occurrence: None)
  Receive Date: 20061219
  Receipt Date: 20061208
  Transmission Date: 20070319
  Serious: Yes (Death)
  Sender: FDA-Public Use
  Company Number: US-JNJFOC-20061202939

PATIENT
  Age: 18 Year
  Sex: Female

DRUGS (4)
  1. TOPIRAMATE [Suspect]
     Indication: BIPOLAR DISORDER
  2. QUETIAPINE FUMARATE [Suspect]
     Indication: BIPOLAR DISORDER
  3. BUPROPION HCL [Suspect]
     Indication: BIPOLAR DISORDER
  4. ATOMOXETINE [Suspect]
     Indication: BIPOLAR DISORDER

REACTIONS (2)
  - COMPLETED SUICIDE [None]
  - DRUG TOXICITY [None]
